FAERS Safety Report 4333842-1 (Version None)
Quarter: 2004Q2

REPORT INFORMATION
  Report Type: 
  Country: None (occurrence: None)
  Receive Date: 20040402
  Receipt Date: 20040329
  Transmission Date: 20050107
  Serious: Yes (Hospitalization)
  Sender: FDA-Public Use
  Company Number: KII-2000-0007872

PATIENT
  Sex: Female

DRUGS (2)
  1. OXYCONTIN [Suspect]
     Indication: CANCER PAIN
     Dosage: 560 MG, TID; 480 MG, TID
  2. OXYCODONE HCL [Suspect]
     Indication: CANCER PAIN

REACTIONS (5)
  - CARCINOMA [None]
  - CONDITION AGGRAVATED [None]
  - HYPOAESTHESIA [None]
  - MOVEMENT DISORDER [None]
  - PAIN EXACERBATED [None]
